FAERS Safety Report 19262385 (Version 5)
Quarter: 2022Q3

REPORT INFORMATION
  Report Type: Report from Study
  Country: DE (occurrence: DE)
  Receive Date: 20210516
  Receipt Date: 20220706
  Transmission Date: 20221027
  Serious: Yes (Hospitalization, Other)
  Sender: FDA-Public Use
  Company Number: DE-CELLTRION INC.-2021DE006367

PATIENT

DRUGS (8)
  1. RITUXIMAB [Suspect]
     Active Substance: RITUXIMAB
     Indication: Secondary progressive multiple sclerosis
     Dosage: EVERY 6 MONTHS
     Route: 042
     Dates: start: 201707
  2. RITUXIMAB [Suspect]
     Active Substance: RITUXIMAB
     Dosage: 600 MG EVERY 6 MONTHS
     Route: 042
     Dates: start: 202006
  3. RITUXIMAB [Suspect]
     Active Substance: RITUXIMAB
     Dosage: EVERY 6 MONTHS
     Route: 042
     Dates: start: 2018
  4. RITUXIMAB [Suspect]
     Active Substance: RITUXIMAB
     Dosage: 600 MG, EVERY 6 MONTHS
     Route: 042
     Dates: start: 20201217
  5. COMIRNATY [Suspect]
     Active Substance: TOZINAMERAN
     Indication: COVID-19
     Dosage: FIRST DOSE OF VACCINATION
     Route: 065
  6. COMIRNATY [Suspect]
     Active Substance: TOZINAMERAN
     Dosage: SECOND DOSE OF VACCINATION
     Route: 065
     Dates: start: 20210621
  7. DARIFENACIN HYDROBROMIDE [Concomitant]
     Active Substance: DARIFENACIN HYDROBROMIDE
     Dosage: 15 MG
  8. DARIFENACIN HYDROBROMIDE [Concomitant]
     Active Substance: DARIFENACIN HYDROBROMIDE
     Dosage: 7.5 MG
     Dates: start: 201707

REACTIONS (12)
  - Multiple sclerosis relapse [Not Recovered/Not Resolved]
  - Pelvic fracture [Unknown]
  - Fall [Unknown]
  - Fractured coccyx [Unknown]
  - Secondary progressive multiple sclerosis [Unknown]
  - Joint range of motion decreased [Not Recovered/Not Resolved]
  - Micturition urgency [Recovered/Resolved]
  - Fatigue [Recovered/Resolved]
  - Pain [Not Recovered/Not Resolved]
  - Fatigue [Not Recovered/Not Resolved]
  - Asthenia [Recovered/Resolved]
  - Off label use [Unknown]

NARRATIVE: CASE EVENT DATE: 20180101
